FAERS Safety Report 22644285 (Version 1)
Quarter: 2023Q2

REPORT INFORMATION
  Report Type: Report from Study
  Country: ES (occurrence: ES)
  Receive Date: 20230627
  Receipt Date: 20230627
  Transmission Date: 20230721
  Serious: Yes (Hospitalization, Other)
  Sender: FDA-Public Use
  Company Number: ES-TAKEDA-SPV1-2009-01930

PATIENT
  Age: 11 Year
  Sex: Male
  Weight: 27 kg

DRUGS (6)
  1. IDURSULFASE [Suspect]
     Active Substance: IDURSULFASE
     Indication: Mucopolysaccharidosis II
     Dosage: 0.44 MILLIGRAM/KILOGRAM, 1/WEEK
     Route: 041
     Dates: start: 20061219
  2. IDURSULFASE [Suspect]
     Active Substance: IDURSULFASE
     Dosage: 0.43 MILLIGRAM/KILOGRAM, 1/WEEK
     Route: 041
     Dates: start: 20070724
  3. IDURSULFASE [Suspect]
     Active Substance: IDURSULFASE
     Dosage: 0.41 MILLIGRAM/KILOGRAM, 1/WEEK
     Route: 041
     Dates: start: 20080722
  4. IDURSULFASE [Suspect]
     Active Substance: IDURSULFASE
     Dosage: 0.35 MILLIGRAM/KILOGRAM, 1/WEEK
     Route: 041
     Dates: start: 20090728
  5. IDURSULFASE [Suspect]
     Active Substance: IDURSULFASE
     Dosage: 0.44 MILLIGRAM/KILOGRAM, 1/WEEK
     Route: 041
     Dates: start: 20100727
  6. IDURSULFASE [Suspect]
     Active Substance: IDURSULFASE
     Dosage: 0.48 MILLIGRAM/KILOGRAM, 1/WEEK
     Route: 041
     Dates: start: 20110420

REACTIONS (3)
  - Tendon injury [Recovered/Resolved]
  - Developmental hip dysplasia [Recovered/Resolved]
  - Muscle strain [Recovered/Resolved]

NARRATIVE: CASE EVENT DATE: 20090911
